FAERS Safety Report 11181271 (Version 1)
Quarter: 2015Q2

REPORT INFORMATION
  Report Type: Spontaneous
  Country: US (occurrence: None)
  Receive Date: 20150610
  Receipt Date: 20150610
  Transmission Date: 20150821
  Serious: Yes (Hospitalization)
  Sender: FDA-Public Use
  Company Number: None

PATIENT
  Age: 14 Year
  Sex: Female
  Weight: 68.95 kg

DRUGS (5)
  1. VISACODYL [Concomitant]
  2. CHLORPORMAZINE [Concomitant]
  3. DIVALPROEX 500 MG [Suspect]
     Active Substance: DIVALPROEX SODIUM
     Indication: AFFECTIVE DISORDER
     Route: 048
     Dates: start: 20150210, end: 20150609
  4. LORATADINE. [Concomitant]
     Active Substance: LORATADINE
  5. DOCUSATE [Concomitant]
     Active Substance: DOCUSATE

REACTIONS (1)
  - Pancreatitis acute [None]

NARRATIVE: CASE EVENT DATE: 20150609
